FAERS Safety Report 24421650 (Version 1)
Quarter: 2024Q4

REPORT INFORMATION
  Report Type: Spontaneous
  Country: US (occurrence: US)
  Receive Date: 20241010
  Receipt Date: 20241010
  Transmission Date: 20250115
  Serious: Yes (Life-Threatening, Hospitalization, Other)
  Sender: AUROBINDO
  Company Number: US-MLMSERVICE-20240923-PI201776-00121-1

PATIENT
  Age: 27 Year
  Sex: Male

DRUGS (2)
  1. DILTIAZEM [Suspect]
     Active Substance: DILTIAZEM
     Indication: Supraventricular tachycardia
     Dosage: TRANSITIONED TO A DILTIAZEM INFUSION
     Route: 041
  2. DILTIAZEM [Suspect]
     Active Substance: DILTIAZEM
     Indication: Atrial fibrillation
     Dosage: BOLUS
     Route: 040

REACTIONS (6)
  - Hyperthyroidism [Unknown]
  - Thyrotoxic crisis [Unknown]
  - Acidosis hyperchloraemic [Unknown]
  - Pleural effusion [Unknown]
  - Respiratory failure [Unknown]
  - Cardiopulmonary failure [Unknown]
